FAERS Safety Report 7079057-8 (Version None)
Quarter: 2010Q4

REPORT INFORMATION
  Report Type: 
  Country: None (occurrence: None)
  Receive Date: 20101102
  Receipt Date: 20101028
  Transmission Date: 20110411
  Serious: Yes (Other)
  Sender: FDA-Public Use
  Company Number: US-ROCHE-723080

PATIENT
  Sex: Female

DRUGS (5)
  1. BEVACIZUMAB [Suspect]
     Indication: BREAST CANCER
     Route: 042
     Dates: start: 20080320
  2. BEVACIZUMAB [Suspect]
     Dosage: LAST DOSE PRIOR TO SAE
     Route: 042
  3. ABRAXANE [Suspect]
     Indication: BREAST CANCER
     Route: 042
     Dates: start: 20080320
  4. ABRAXANE [Suspect]
     Dosage: LAST DOSE PRIOR TO SAE
     Route: 042
  5. NEUPOGEN [Suspect]
     Indication: BREAST CANCER
     Route: 065

REACTIONS (2)
  - HYPOGLYCAEMIA [None]
  - SYNCOPE [None]
